FAERS Safety Report 25035012 (Version 2)
Quarter: 2025Q1

REPORT INFORMATION
  Report Type: Spontaneous
  Country: US (occurrence: US)
  Receive Date: 20250304
  Receipt Date: 20250306
  Transmission Date: 20250408
  Serious: No
  Sender: SANDOZ
  Company Number: US-SANDOZ-SDZ2025US012859

PATIENT
  Age: 53 Year
  Sex: Female

DRUGS (1)
  1. COMBIPATCH [Suspect]
     Active Substance: ESTRADIOL\NORETHINDRONE ACETATE
     Indication: Menopausal symptoms
     Route: 062
     Dates: start: 202502

REACTIONS (7)
  - Dermal absorption impaired [Recovered/Resolved]
  - Therapeutic product ineffective [Recovering/Resolving]
  - Product adhesion issue [Recovered/Resolved]
  - Product colour issue [Recovered/Resolved]
  - Product quality issue [Recovered/Resolved]
  - Adhesive tape use [Recovered/Resolved]
  - Wrong technique in product usage process [Recovered/Resolved]

NARRATIVE: CASE EVENT DATE: 20250201
